FAERS Safety Report 20093337 (Version 2)
Quarter: 2021Q4

REPORT INFORMATION
  Report Type: Report from Study
  Country: US (occurrence: US)
  Receive Date: 20211120
  Receipt Date: 20211221
  Transmission Date: 20220303
  Serious: Yes (Other)
  Sender: FDA-Public Use
  Company Number: US-NOVARTISPH-NVSC2021US263391

PATIENT
  Sex: Male

DRUGS (1)
  1. ENTRESTO [Suspect]
     Active Substance: SACUBITRIL\VALSARTAN
     Indication: Product used for unknown indication
     Dosage: 1 DOSAGE FORM, (97/103 MG), BID
     Route: 048
     Dates: start: 2019

REACTIONS (3)
  - Cardiac arrest [Unknown]
  - Incision site swelling [Unknown]
  - Incision site pain [Unknown]

NARRATIVE: CASE EVENT DATE: 20190101
